FAERS Safety Report 5832087-3 (Version None)
Quarter: 2008Q3

REPORT INFORMATION
  Report Type: 
  Country: None (occurrence: None)
  Receive Date: 20080804
  Receipt Date: 20080729
  Transmission Date: 20090109
  Serious: Yes (Life-Threatening, Other)
  Sender: FDA-Public Use
  Company Number: GB-TEVA-163117ISR

PATIENT
  Age: 37 Year
  Sex: Female

DRUGS (2)
  1. SERTRALINE [Suspect]
     Indication: DEPRESSION
     Route: 048
     Dates: start: 20061106, end: 20061206
  2. SERTRALINE [Suspect]
     Route: 048
     Dates: start: 20051010

REACTIONS (3)
  - ANTIPHOSPHOLIPID SYNDROME [None]
  - STILLBIRTH [None]
  - VAGINAL HAEMORRHAGE [None]
